FAERS Safety Report 10015640 (Version 1)
Quarter: 2014Q1

REPORT INFORMATION
  Report Type: Spontaneous
  Country: US (occurrence: US)
  Receive Date: 20140317
  Receipt Date: 20140317
  Transmission Date: 20141002
  Serious: No
  Sender: FDA-Public Use
  Company Number: US-009507513-1403USA007078

PATIENT
  Age: 49 Year
  Sex: Female

DRUGS (6)
  1. SIMVASTATIN TABLETS, USP [Suspect]
     Indication: BLOOD CHOLESTEROL INCREASED
     Dosage: UNK
     Route: 048
     Dates: start: 2013, end: 20140227
  2. SIMVASTATIN TABLETS, USP [Suspect]
     Indication: BLOOD TRIGLYCERIDES INCREASED
  3. FENOFIBRATE [Suspect]
     Indication: BLOOD CHOLESTEROL INCREASED
     Dosage: UNK
     Dates: start: 2013, end: 20140227
  4. FENOFIBRATE [Suspect]
     Indication: BLOOD TRIGLYCERIDES INCREASED
  5. VYTORIN [Concomitant]
     Indication: BLOOD CHOLESTEROL INCREASED
     Dosage: 10/40 MG, AT BEDTIME
     Route: 048
     Dates: end: 201303
  6. VYTORIN [Concomitant]
     Indication: BLOOD TRIGLYCERIDES INCREASED

REACTIONS (2)
  - Blood cholesterol abnormal [Unknown]
  - Rash [Unknown]
